FAERS Safety Report 9756668 (Version 1)
Quarter: 2013Q4

REPORT INFORMATION
  Report Type: Spontaneous
  Country: DK (occurrence: FR)
  Receive Date: 20131213
  Receipt Date: 20131213
  Transmission Date: 20140711
  Serious: Yes (Hospitalization)
  Sender: FDA-Public Use
  Company Number: FR-FRI-1000052210

PATIENT
  Age: 82 Year
  Sex: Female

DRUGS (10)
  1. ESCITALOPRAM [Suspect]
     Indication: DEMENTIA
     Dosage: 1 DF
     Route: 048
     Dates: start: 201204, end: 20120524
  2. ESCITALOPRAM [Suspect]
     Indication: AGITATION
  3. RISPERDAL [Suspect]
     Indication: DEMENTIA
     Route: 048
     Dates: start: 201204
  4. RISPERDAL [Suspect]
     Indication: AGITATION
  5. EUCREAS [Suspect]
     Dosage: 100/1700 MG
     Route: 048
     Dates: end: 201204
  6. KARDEGIC [Concomitant]
     Dates: start: 201202
  7. IKOREL [Concomitant]
     Dates: start: 201202
  8. CRESTOR [Concomitant]
     Dates: start: 201202
  9. DUPHALAC [Concomitant]
     Dates: start: 201202
  10. CACIT [Concomitant]
     Dates: start: 201204

REACTIONS (1)
  - Pemphigoid [Not Recovered/Not Resolved]
